FAERS Safety Report 9138252 (Version 1)
Quarter: 2013Q1

REPORT INFORMATION
  Report Type: Spontaneous
  Country: DE (occurrence: DE)
  Receive Date: 20130305
  Receipt Date: 20130305
  Transmission Date: 20140127
  Serious: Yes (Other)
  Sender: FDA-Public Use
  Company Number: DE-AMGEN-DEUSP2013014708

PATIENT
  Age: 70 Year
  Sex: Male

DRUGS (9)
  1. ENBREL [Suspect]
     Indication: RHEUMATOID ARTHRITIS
     Dosage: 50 MG, WEEKLY
     Dates: start: 20090604, end: 20130219
  2. MARCUMAR [Concomitant]
     Dosage: UNK
  3. DICLOFENAC [Concomitant]
     Dosage: 50 MG, DAILY
  4. CALCIUM [Concomitant]
     Dosage: UNK
  5. SIMVASTATIN [Concomitant]
     Dosage: 10 MG, UNK
  6. ASS [Concomitant]
     Dosage: 100 MG, UNK
  7. RAMIPRIL [Concomitant]
     Dosage: 10 MG, UNK
  8. OMEPRAZOL                          /00661201/ [Concomitant]
     Dosage: 40 MG, UNK
  9. MTX                                /00113801/ [Concomitant]
     Dosage: 15 MG, UNK
     Route: 058

REACTIONS (1)
  - Bone deformity [Not Recovered/Not Resolved]
